FAERS Safety Report 9740087 (Version 2)
Quarter: 2014Q1

REPORT INFORMATION
  Report Type: Spontaneous
  Country: AU (occurrence: AU)
  Receive Date: 20131209
  Receipt Date: 20140220
  Transmission Date: 20141002
  Serious: Yes (Death, Hospitalization, Other)
  Sender: FDA-Public Use
  Company Number: AU-ELI_LILLY_AND_COMPANY-AU201312002142

PATIENT
  Age: 55 Year
  Sex: Male

DRUGS (5)
  1. GEMCITABINE HYDROCHLORIDE [Suspect]
     Indication: ADENOCARCINOMA PANCREAS
     Dosage: 1000 MG/M2, OTHER
     Dates: start: 20110712
  2. PANCREATIC ENZYMES [Concomitant]
  3. OMEPRAZOLE [Concomitant]
  4. SODIUM VALPROATE [Concomitant]
  5. TRANYLCYPROMINE [Concomitant]

REACTIONS (6)
  - Death [Fatal]
  - Thrombotic microangiopathy [Unknown]
  - Hypertension [Unknown]
  - Malignant neoplasm progression [Unknown]
  - Diarrhoea [Unknown]
  - Oedema peripheral [Unknown]
